FAERS Safety Report 8344798-9 (Version None)
Quarter: 2012Q2

REPORT INFORMATION
  Report Type: 
  Country: None (occurrence: None)
  Receive Date: 20120508
  Receipt Date: 20120501
  Transmission Date: 20120825
  Serious: Yes (Death, Hospitalization)
  Sender: FDA-Public Use
  Company Number: US-GLAXOSMITHKLINE-A0914218A

PATIENT
  Age: 60 Year
  Sex: Female
  Weight: 93.2 kg

DRUGS (8)
  1. ZETIA [Concomitant]
  2. GLUCOPHAGE [Concomitant]
  3. EFFEXOR [Concomitant]
  4. REMERON [Concomitant]
  5. MICARDIS [Concomitant]
  6. LIPITOR [Concomitant]
  7. AVANDIA [Suspect]
     Indication: DIABETES MELLITUS
     Dosage: 4MG PER DAY
     Route: 048
     Dates: start: 20030101, end: 20061201
  8. ATENOLOL [Concomitant]

REACTIONS (2)
  - CARDIAC ARREST [None]
  - MYOCARDIAL INFARCTION [None]
